FAERS Safety Report 12230844 (Version 1)
Quarter: 2016Q2

REPORT INFORMATION
  Report Type: Spontaneous
  Country: IT (occurrence: IT)
  Receive Date: 20160401
  Receipt Date: 20160401
  Transmission Date: 20160815
  Serious: Yes (Other)
  Sender: FDA-Public Use
  Company Number: IT-VALIDUS PHARMACEUTICALS LLC-IT-2016VAL000540

PATIENT
  Age: 32 Year
  Sex: Female

DRUGS (1)
  1. CARBAMAZEPINE. [Suspect]
     Active Substance: CARBAMAZEPINE
     Indication: PSYCHOTIC DISORDER
     Dosage: 1200 MG/DAY

REACTIONS (5)
  - Hyperprolactinaemia [Unknown]
  - Central nervous system lesion [Recovered/Resolved]
  - Galactorrhoea [Unknown]
  - Amenorrhoea [Unknown]
  - Weight increased [Unknown]
